FAERS Safety Report 7940644-3 (Version None)
Quarter: 2011Q4

REPORT INFORMATION
  Report Type: 
  Country: None (occurrence: None)
  Receive Date: 20111128
  Receipt Date: 20111114
  Transmission Date: 20120403
  Serious: Yes (Other)
  Sender: FDA-Public Use
  Company Number: BR-ELI_LILLY_AND_COMPANY-BR201110007154

PATIENT
  Age: 80 Year
  Sex: Male

DRUGS (6)
  1. SPIRIVA [Concomitant]
     Indication: CHRONIC OBSTRUCTIVE PULMONARY DISEASE
     Dosage: UNK UNK, QD
     Route: 065
     Dates: start: 20020101
  2. FORTEO [Suspect]
     Dosage: UNK, UNKNOWN
     Route: 065
  3. FORMOTEROL FUMARATE [Concomitant]
     Indication: CHRONIC OBSTRUCTIVE PULMONARY DISEASE
     Dosage: UNK, UNKNOWN
     Route: 065
  4. VITAMIN D [Concomitant]
     Indication: SUPPLEMENTATION THERAPY
     Dosage: UNK, UNKNOWN
     Route: 065
  5. SYMBICORT [Concomitant]
     Indication: CHRONIC OBSTRUCTIVE PULMONARY DISEASE
     Dosage: 2 DF, QD
     Route: 055
  6. CALCIUM [Concomitant]
     Indication: SUPPLEMENTATION THERAPY
     Dosage: UNK, UNKNOWN
     Route: 065

REACTIONS (6)
  - BLOOD PARATHYROID HORMONE INCREASED [None]
  - ASTHMATIC CRISIS [None]
  - BLOOD 25-HYDROXYCHOLECALCIFEROL DECREASED [None]
  - WHITE BLOOD CELL COUNT DECREASED [None]
  - HAEMATOCRIT ABNORMAL [None]
  - PLATELET COUNT DECREASED [None]
